FAERS Safety Report 24527595 (Version 1)
Quarter: 2024Q4

REPORT INFORMATION
  Report Type: Report from Study
  Country: CA (occurrence: CA)
  Receive Date: 20241021
  Receipt Date: 20241021
  Transmission Date: 20250114
  Serious: Yes (Disabling)
  Sender: TAKEDA
  Company Number: CA-TAKEDA-2024TUS103461

PATIENT
  Sex: Male

DRUGS (4)
  1. VEDOLIZUMAB [Suspect]
     Active Substance: VEDOLIZUMAB
     Indication: Colitis ulcerative
     Dosage: 300 MILLIGRAM
     Route: 042
     Dates: start: 20220517
  2. Cortiment [Concomitant]
     Dosage: 9 MILLIGRAM
     Dates: start: 20220405
  3. Salofalk [Concomitant]
     Dosage: 4 GRAM
     Dates: start: 20210202
  4. SULFASALAZINE [Concomitant]
     Active Substance: SULFASALAZINE
     Dosage: 4 GRAM
     Dates: start: 20200304

REACTIONS (1)
  - Muscle spasms [Unknown]
